FAERS Safety Report 22304315 (Version 1)
Quarter: 2023Q2

REPORT INFORMATION
  Report Type: Spontaneous
  Country: CN (occurrence: CN)
  Receive Date: 20230510
  Receipt Date: 20230510
  Transmission Date: 20230721
  Serious: Yes (Life-Threatening)
  Sender: FDA-Public Use
  Company Number: CN-Merck Healthcare KGaA-9400517

PATIENT
  Age: 65 Year
  Sex: Female
  Weight: 50 kg

DRUGS (4)
  1. ERBITUX [Suspect]
     Active Substance: CETUXIMAB
     Indication: Gingival cancer
     Dosage: 400 MG, UNKNOWN
     Route: 041
     Dates: start: 20230322, end: 20230322
  2. PACLITAXEL [Suspect]
     Active Substance: PACLITAXEL
     Indication: Gingival cancer
     Dosage: UNK UNK, UNKNOWN
     Route: 041
     Dates: start: 20230322, end: 20230322
  3. SODIUM CHLORIDE [Concomitant]
     Active Substance: SODIUM CHLORIDE
     Indication: Medication dilution
     Route: 041
     Dates: start: 20230322, end: 20230322
  4. SODIUM CHLORIDE [Concomitant]
     Active Substance: SODIUM CHLORIDE
     Route: 041
     Dates: start: 20230322, end: 20230322

REACTIONS (2)
  - White blood cell count decreased [Recovering/Resolving]
  - Neutrophil count decreased [Recovering/Resolving]

NARRATIVE: CASE EVENT DATE: 20230327
